FAERS Safety Report 8380033-3 (Version None)
Quarter: 2012Q2

REPORT INFORMATION
  Report Type: 
  Country: None (occurrence: None)
  Receive Date: 20120523
  Receipt Date: 20120514
  Transmission Date: 20120825
  Serious: Yes (Hospitalization)
  Sender: FDA-Public Use
  Company Number: AT-ASTRAZENECA-2012SE31223

PATIENT
  Age: 81 Year
  Sex: Male
  Weight: 95 kg

DRUGS (8)
  1. NEXIUM [Suspect]
     Route: 048
     Dates: start: 20110101
  2. VENLAFAXINE HCL [Suspect]
     Dates: start: 20110101
  3. NEURONTIN [Concomitant]
     Dates: start: 20111130, end: 20111202
  4. LIPSIN RET [Concomitant]
     Dates: start: 20080101
  5. DOMINAL FORTE [Suspect]
     Dates: start: 20110101
  6. GLUCOPHAGE [Concomitant]
     Dates: start: 20100101
  7. LYRICA [Suspect]
     Dates: start: 20111202, end: 20111202
  8. T-ASS [Concomitant]
     Dates: start: 20060101

REACTIONS (3)
  - MYOCLONUS [None]
  - HALLUCINATION, VISUAL [None]
  - MUSCLE SPASMS [None]
